FAERS Safety Report 16100272 (Version 1)
Quarter: 2019Q1

REPORT INFORMATION
  Report Type: Spontaneous
  Country: US (occurrence: US)
  Receive Date: 20190321
  Receipt Date: 20190321
  Transmission Date: 20190418
  Serious: No
  Sender: FDA-Public Use
  Company Number: US-FERRINGPH-2019FE00130

PATIENT
  Age: 71 Year
  Sex: Female
  Weight: 72.56 kg

DRUGS (2)
  1. CLENPIQ [Suspect]
     Active Substance: ANHYDROUS CITRIC ACID\MAGNESIUM OXIDE\SODIUM PICOSULFATE
     Indication: BOWEL PREPARATION
     Dosage: 2 BOTTLES
     Route: 048
     Dates: start: 20190106, end: 20190106
  2. OMEPRAZOLE. [Concomitant]
     Active Substance: OMEPRAZOLE
     Indication: GASTROINTESTINAL DISORDER
     Route: 065

REACTIONS (6)
  - Throat irritation [Unknown]
  - Diarrhoea [Recovered/Resolved]
  - Anorectal discomfort [Unknown]
  - Dyspepsia [Unknown]
  - Haemorrhoids [Unknown]
  - Gastritis [Unknown]

NARRATIVE: CASE EVENT DATE: 20190106
